FAERS Safety Report 4608927-2 (Version None)
Quarter: 2005Q1

REPORT INFORMATION
  Report Type: 
  Country: None (occurrence: None)
  Receive Date: 20050311
  Receipt Date: 20050302
  Transmission Date: 20050727
  Serious: Yes (Life-Threatening)
  Sender: FDA-Public Use
  Company Number: 2005-126040-NL

PATIENT
  Age: 41 Year
  Sex: Female

DRUGS (2)
  1. MIRTAZAPINE [Suspect]
     Dosage: 30 MG
     Dates: start: 20020225, end: 20020301
  2. CLORAZEPATE DIPOTASSIUM [Concomitant]

REACTIONS (4)
  - AKATHISIA [None]
  - DISTURBANCE IN ATTENTION [None]
  - RESTLESSNESS [None]
  - SUICIDAL IDEATION [None]
